FAERS Safety Report 6891521-0 (Version None)
Quarter: 2010Q3

REPORT INFORMATION
  Report Type: 
  Country: None (occurrence: None)
  Receive Date: 20100731
  Receipt Date: 20070922
  Transmission Date: 20110219
  Serious: No
  Sender: FDA-Public Use
  Company Number: US-PFIZER INC-2007058114

PATIENT
  Sex: Male
  Weight: 96.62 kg

DRUGS (5)
  1. CAMPTOSAR [Suspect]
     Indication: COLORECTAL CANCER
     Route: 042
     Dates: start: 20070629
  2. LEUCOVORIN CALCIUM [Suspect]
     Indication: COLORECTAL CANCER
     Route: 042
     Dates: start: 20070629
  3. PROTONIX [Concomitant]
  4. COMPAZINE [Concomitant]
  5. LORTAB [Concomitant]

REACTIONS (3)
  - INCORRECT DOSE ADMINISTERED [None]
  - MEDICAL DEVICE COMPLICATION [None]
  - NO ADVERSE EVENT [None]
